FAERS Safety Report 7514392-8 (Version None)
Quarter: 2011Q2

REPORT INFORMATION
  Report Type: 
  Country: None (occurrence: None)
  Receive Date: 20110601
  Receipt Date: 20110524
  Transmission Date: 20111010
  Serious: No
  Sender: FDA-Public Use
  Company Number: US-BIOGENIDEC-2011BI019612

PATIENT
  Age: 55 Year
  Sex: Male

DRUGS (3)
  1. TYSABRI [Suspect]
     Route: 042
     Dates: start: 20070104, end: 20110114
  2. TYSABRI [Suspect]
     Indication: MULTIPLE SCLEROSIS
     Route: 042
     Dates: start: 20110419
  3. TYSABRI [Suspect]
     Route: 042
     Dates: start: 20050204

REACTIONS (4)
  - ASTHENIA [None]
  - SPEECH DISORDER [None]
  - COORDINATION ABNORMAL [None]
  - GAIT DISTURBANCE [None]
